FAERS Safety Report 6123073-7 (Version None)
Quarter: 2009Q1

REPORT INFORMATION
  Report Type: 
  Country: None (occurrence: None)
  Receive Date: 20090318
  Receipt Date: 20090313
  Transmission Date: 20090719
  Serious: Yes (Hospitalization)
  Sender: FDA-Public Use
  Company Number: US-PFIZER INC-2008079236

PATIENT
  Sex: Male
  Weight: 88.9 kg

DRUGS (22)
  1. SUTENT [Suspect]
     Indication: SMALL CELL LUNG CANCER STAGE UNSPECIFIED
     Dosage: 25 MG
     Dates: start: 20080918
  2. CARBOPLATIN [Suspect]
     Indication: SMALL CELL LUNG CANCER STAGE UNSPECIFIED
     Dosage: 456/122 MG
     Dates: start: 20080905
  3. IRINOTECAN HYDROCHLORIDE [Suspect]
     Indication: SMALL CELL LUNG CANCER STAGE UNSPECIFIED
     Dosage: TDD 122 MG
     Dates: start: 20080905
  4. METHOCARBAMOL [Concomitant]
     Indication: PAIN
     Dosage: 750 MG, 2X/DAY
     Route: 048
     Dates: start: 20000101
  5. CLOBETASOL PROPIONATE [Concomitant]
     Dosage: 0.5 %, 1X/DAY
     Route: 061
     Dates: start: 20040101
  6. GABAPENTIN [Concomitant]
     Indication: NEUROPATHY PERIPHERAL
     Dosage: 800 MG, 1X/DAY
     Route: 048
     Dates: start: 20000101
  7. ASPIRIN [Concomitant]
     Dosage: 81 MG, 1X/DAY
     Route: 048
     Dates: start: 20050101
  8. AMLODIPINE/BENAZEPRIL [Concomitant]
     Indication: HYPERTENSION
     Dosage: 5/20 MG, 1X/DAY
     Route: 048
     Dates: start: 20050101
  9. CITALOPRAM [Concomitant]
     Indication: DEPRESSION
     Dosage: 20 MG, 1X/DAY
     Dates: start: 20020101
  10. TRICOR [Concomitant]
     Indication: HYPERCHOLESTEROLAEMIA
     Dosage: 120 MG, 1X/DAY
     Route: 048
     Dates: start: 20050101
  11. AVANDIA [Concomitant]
     Indication: DIABETES MELLITUS
     Dosage: 4 MG, 1X/DAY
     Route: 048
     Dates: start: 20020101
  12. VYTORIN [Concomitant]
     Indication: HYPERCHOLESTEROLAEMIA
     Dosage: UNK
     Route: 048
     Dates: start: 20020101
  13. PERCOCET [Concomitant]
     Indication: PAIN
     Dosage: UNK
     Route: 048
     Dates: start: 20020101
  14. ENOXAPARIN SODIUM [Concomitant]
     Indication: THROMBOSIS PROPHYLAXIS
     Dosage: 40 MG, UNK
     Route: 058
     Dates: start: 20080922, end: 20080926
  15. FLUCONAZOLE [Concomitant]
     Dosage: 100 MG, 1X/DAY
     Dates: start: 20080922, end: 20080925
  16. HYDROCORTISONE [Concomitant]
     Indication: RASH
     Dosage: 20 MG, EVERY 8 HRS
     Route: 042
     Dates: start: 20080918, end: 20080921
  17. INSULIN [Concomitant]
     Indication: DIABETES MELLITUS
     Dosage: 80 UNK, AS NEEDED
     Route: 058
     Dates: start: 20080919, end: 20080921
  18. INSULIN [Concomitant]
     Dosage: 15 UNK, AS NEEDED
     Dates: start: 20080919, end: 20080919
  19. MAGNESIUM [Concomitant]
     Indication: HYPOMAGNESAEMIA
     Dosage: 50 ML, X 3 DAYS
     Dates: start: 20080923, end: 20080926
  20. MORPHINE [Concomitant]
     Indication: PAIN
     Dosage: 15 MG, 2X/DAY
     Route: 048
     Dates: start: 20080922, end: 20080926
  21. PANTOPRAZOLE [Concomitant]
     Indication: GASTROOESOPHAGEAL REFLUX DISEASE
     Dosage: 40 MG, 1X/DAY
     Route: 048
     Dates: start: 20080918, end: 20080926
  22. CARAFATE [Concomitant]
     Indication: GASTROOESOPHAGEAL REFLUX DISEASE
     Dosage: UNK
     Dates: start: 20080920, end: 20080925

REACTIONS (4)
  - HYPERKALAEMIA [None]
  - NEUTROPENIC SEPSIS [None]
  - RENAL FAILURE [None]
  - THROMBOCYTOPENIA [None]
